FAERS Safety Report 7228623-5 (Version None)
Quarter: 2011Q1

REPORT INFORMATION
  Report Type: 
  Country: None (occurrence: None)
  Receive Date: 20110117
  Receipt Date: 20110106
  Transmission Date: 20110831
  Serious: No
  Sender: FDA-Public Use
  Company Number: US-BIOGENIDEC-2011BI000783

PATIENT
  Sex: Female

DRUGS (1)
  1. TYSABRI [Suspect]
     Indication: MULTIPLE SCLEROSIS
     Route: 042

REACTIONS (5)
  - SENSORY DISTURBANCE [None]
  - PAIN IN EXTREMITY [None]
  - FATIGUE [None]
  - MUSCLE SPASMS [None]
  - MUSCLE SPASTICITY [None]
